FAERS Safety Report 10196496 (Version 1)
Quarter: 2014Q2

REPORT INFORMATION
  Report Type: Spontaneous
  Country: US (occurrence: None)
  Receive Date: 20140523
  Receipt Date: 20140523
  Transmission Date: 20141212
  Serious: Yes (Life-Threatening)
  Sender: FDA-Public Use
  Company Number: None

PATIENT
  Age: 67 Year
  Sex: Male
  Weight: 115 kg

DRUGS (1)
  1. DEFINITY [Suspect]
     Indication: ECHOCARDIOGRAM
     Route: 042
     Dates: start: 20140501

REACTIONS (10)
  - Contrast media reaction [None]
  - Back pain [None]
  - Blood pressure increased [None]
  - Bundle branch block left [None]
  - Electrocardiogram T wave inversion [None]
  - Dyspnoea [None]
  - Cyanosis [None]
  - Tachycardia [None]
  - Left ventricular hypertrophy [None]
  - Ejection fraction decreased [None]
